FAERS Safety Report 15268005 (Version 1)
Quarter: 2018Q3

REPORT INFORMATION
  Report Type: Spontaneous
  Country: US (occurrence: US)
  Receive Date: 20180725
  Receipt Date: 20180725
  Transmission Date: 20181010
  Serious: Yes (Life-Threatening, Disabling)
  Sender: FDA-Public Use
  Company Number: None

PATIENT
  Age: 66 Year
  Sex: Male
  Weight: 68.85 kg

DRUGS (1)
  1. OCREVUS [Suspect]
     Active Substance: OCRELIZUMAB
     Indication: MULTIPLE SCLEROSIS
     Dosage: ?          OTHER FREQUENCY:ONCE EVERY 6 MONTH;?
     Route: 042
     Dates: start: 20171017, end: 20180409

REACTIONS (4)
  - Metastases to central nervous system [None]
  - Adrenal disorder [None]
  - Non-small cell lung cancer [None]
  - Metastases to bone [None]

NARRATIVE: CASE EVENT DATE: 20180618
